FAERS Safety Report 4972223-4 (Version None)
Quarter: 2006Q2

REPORT INFORMATION
  Report Type: 
  Country: None (occurrence: None)
  Receive Date: 20060413
  Receipt Date: 20060407
  Transmission Date: 20061013
  Serious: Yes (Life-Threatening)
  Sender: FDA-Public Use
  Company Number: FR-GLAXOSMITHKLINE-B0420120A

PATIENT
  Age: 44 Year
  Sex: Female

DRUGS (4)
  1. AUGMENTIN '125' [Suspect]
     Dosage: 1000MG SINGLE DOSE
     Route: 048
     Dates: start: 20060210, end: 20060210
  2. ZOVIRAX [Concomitant]
     Dosage: 200MG SINGLE DOSE
     Route: 048
     Dates: start: 20060210, end: 20060210
  3. LAMALINE [Concomitant]
     Dosage: 1UNIT SINGLE DOSE
     Route: 054
     Dates: start: 20060210, end: 20060210
  4. BRONCHOKOD [Concomitant]
     Dosage: 1TBS SINGLE DOSE
     Route: 048
     Dates: start: 20060210, end: 20060210

REACTIONS (2)
  - ANAPHYLACTIC SHOCK [None]
  - FACE OEDEMA [None]
